FAERS Safety Report 17544594 (Version 1)
Quarter: 2020Q1

REPORT INFORMATION
  Report Type: Spontaneous
  Country: GB (occurrence: GB)
  Receive Date: 20200316
  Receipt Date: 20200316
  Transmission Date: 20200409
  Serious: Yes (Other)
  Sender: FDA-Public Use
  Company Number: GB-ACCORD-175289

PATIENT
  Age: 48 Year
  Sex: Female

DRUGS (1)
  1. PACLITAXEL/PACLITAXEL LIPOSOME [Suspect]
     Active Substance: PACLITAXEL
     Indication: PRODUCT USED FOR UNKNOWN INDICATION
     Dosage: SECOND CYCLE
     Dates: start: 20190705

REACTIONS (3)
  - Back pain [Unknown]
  - Head discomfort [Unknown]
  - Chest discomfort [Unknown]

NARRATIVE: CASE EVENT DATE: 20190705
